FAERS Safety Report 25184787 (Version 3)
Quarter: 2025Q2

REPORT INFORMATION
  Report Type: Spontaneous
  Country: US (occurrence: US)
  Receive Date: 20250410
  Receipt Date: 20250505
  Transmission Date: 20250717
  Serious: Yes (Disabling, Other)
  Sender: CHATTEM
  Company Number: US-OPELLA-2025OHG010156

PATIENT
  Age: 0 Year
  Sex: Female

DRUGS (1)
  1. GOLD BOND ORIGINAL STRENGTH [Suspect]
     Active Substance: MENTHOL
     Indication: Product used for unknown indication
     Dates: start: 19881126

REACTIONS (5)
  - Metastases to peritoneum [Unknown]
  - Epithelioid mesothelioma [Unknown]
  - Exposure to chemical pollution [Unknown]
  - Haemorrhoids [Unknown]
  - Occupational exposure to toxic agent [Unknown]

NARRATIVE: CASE EVENT DATE: 19881126
